FAERS Safety Report 10678565 (Version 3)
Quarter: 2015Q2

REPORT INFORMATION
  Report Type: Spontaneous
  Country: JP (occurrence: JP)
  Receive Date: 20141229
  Receipt Date: 20150430
  Transmission Date: 20150821
  Serious: Yes (Death)
  Sender: FDA-Public Use
  Company Number: JP-TEVA-530940ISR

PATIENT
  Age: 72 Year
  Sex: Male
  Weight: 53 kg

DRUGS (9)
  1. MAGMITT [Concomitant]
     Active Substance: MAGNESIUM OXIDE
     Indication: CONSTIPATION PROPHYLAXIS
     Route: 048
     Dates: end: 20141202
  2. CELECOX [Concomitant]
     Active Substance: CELECOXIB
     Indication: CANCER PAIN
     Route: 048
     Dates: start: 20140529, end: 20141202
  3. MIYA-BM [Concomitant]
     Active Substance: CLOSTRIDIUM BUTYRICUM SPORES STRAIN M-55
     Indication: PROPHYLAXIS
     Route: 048
     Dates: end: 20141202
  4. MUCOSTA [Concomitant]
     Active Substance: REBAMIPIDE
     Indication: PROPHYLAXIS
     Route: 048
     Dates: end: 20141202
  5. FENTOS [Concomitant]
     Active Substance: FENTANYL
     Indication: CANCER PAIN
     Route: 062
  6. SENNOSIDE [Concomitant]
     Active Substance: SENNOSIDES
     Indication: CONSTIPATION PROPHYLAXIS
     Route: 048
     Dates: end: 20141202
  7. ACELIO [Concomitant]
     Active Substance: ACETAMINOPHEN
     Indication: CANCER PAIN
     Route: 042
     Dates: start: 20141204, end: 20141206
  8. VOLTAREN [Concomitant]
     Active Substance: DICLOFENAC SODIUM
     Indication: CANCER PAIN
     Route: 054
     Dates: start: 20141205, end: 20141206
  9. E-FEN BUCCAL (FENTANYL CITRATE) [Suspect]
     Active Substance: FENTANYL CITRATE
     Indication: BREAKTHROUGH PAIN
     Dosage: DAILY DOSE 100-400 MICROGRAM
     Route: 002
     Dates: start: 20141202, end: 20141205

REACTIONS (1)
  - Malignant neoplasm of renal pelvis [Fatal]

NARRATIVE: CASE EVENT DATE: 20141206
